FAERS Safety Report 9068829 (Version 1)
Quarter: 2013Q1

REPORT INFORMATION
  Report Type: Spontaneous
  Country: JP (occurrence: JP)
  Receive Date: 20130215
  Receipt Date: 20130215
  Transmission Date: 20140127
  Serious: Yes (Hospitalization)
  Sender: FDA-Public Use
  Company Number: JP-SANOFI-AVENTIS-2013SA011725

PATIENT
  Age: 74 Year
  Sex: Female

DRUGS (11)
  1. PLAVIX [Suspect]
     Indication: PRODUCT USED FOR UNKNOWN INDICATION
     Route: 048
     Dates: start: 20110106
  2. VALSARTAN [Concomitant]
  3. AMLODIPINE [Concomitant]
  4. TAKEPRON [Concomitant]
  5. FRANDOL [Concomitant]
  6. TOUGHMAC E [Concomitant]
  7. MUCOSTA [Concomitant]
  8. LISPINE [Concomitant]
  9. PRAVASTATIN [Concomitant]
  10. LOXONIN [Concomitant]
  11. BAYASPIRIN [Concomitant]

REACTIONS (1)
  - Anaphylactic shock [Recovered/Resolved]
